FAERS Safety Report 25594746 (Version 1)
Quarter: 2025Q3

REPORT INFORMATION
  Report Type: Spontaneous
  Country: BO (occurrence: BO)
  Receive Date: 20250723
  Receipt Date: 20250723
  Transmission Date: 20251021
  Serious: Yes (Death)
  Sender: NOVARTIS
  Company Number: BO-002147023-NVSC2025BO116501

PATIENT
  Sex: Female

DRUGS (1)
  1. TASIGNA [Suspect]
     Active Substance: NILOTINIB
     Indication: Chronic myeloid leukaemia
     Dosage: 400 MG, BID (4 X 200 MG TABLET)
     Route: 065

REACTIONS (2)
  - Chronic myeloid leukaemia [Fatal]
  - Malignant neoplasm progression [Fatal]
